FAERS Safety Report 8259190-5 (Version None)
Quarter: 2012Q2

REPORT INFORMATION
  Report Type: 
  Country: None (occurrence: None)
  Receive Date: 20120404
  Receipt Date: 20120402
  Transmission Date: 20120825
  Serious: Yes (Other)
  Sender: FDA-Public Use
  Company Number: CA-NAPPMUNDI-CAN-2012-0002790

PATIENT
  Age: 32 Year
  Sex: Male

DRUGS (3)
  1. METHAMPHETAMINE HYDROCHLORIDE [Suspect]
     Indication: PRODUCT USED FOR UNKNOWN INDICATION
     Dosage: UNK
     Route: 065
  2. HYDROMORPHONE HCL [Suspect]
     Indication: PRODUCT USED FOR UNKNOWN INDICATION
     Dosage: UNK
     Route: 065
  3. MARIJUANA [Suspect]
     Indication: PRODUCT USED FOR UNKNOWN INDICATION
     Dosage: UNK
     Route: 065

REACTIONS (5)
  - DRUG DEPENDENCE [None]
  - AGGRESSION [None]
  - SUBSTANCE ABUSE [None]
  - PHYSICAL ASSAULT [None]
  - HOMICIDAL IDEATION [None]
